FAERS Safety Report 18394023 (Version 1)
Quarter: 2020Q4

REPORT INFORMATION
  Report Type: Spontaneous
  Country: IT (occurrence: IT)
  Receive Date: 20201016
  Receipt Date: 20201016
  Transmission Date: 20210114
  Serious: Yes (Other)
  Sender: FDA-Public Use
  Company Number: NVSC2020IT275134

PATIENT
  Age: 77 Year
  Sex: Male

DRUGS (5)
  1. AZARGA [Suspect]
     Active Substance: BRINZOLAMIDE\TIMOLOL MALEATE
     Dosage: UNK
     Route: 065
  2. AZARGA [Suspect]
     Active Substance: BRINZOLAMIDE\TIMOLOL MALEATE
     Indication: PRODUCT USED FOR UNKNOWN INDICATION
     Dosage: QD (1 DROP INTO THE RIGHT EYE AND 2 DROPS INTO THE LEFT)
     Route: 065
     Dates: start: 20200709
  3. SAFLUTAN [Concomitant]
     Active Substance: TAFLUPROST
     Indication: PRODUCT USED FOR UNKNOWN INDICATION
     Dosage: UNK
     Route: 065
     Dates: start: 20200901
  4. AZARGA [Suspect]
     Active Substance: BRINZOLAMIDE\TIMOLOL MALEATE
     Dosage: UNK
     Route: 065
     Dates: start: 20200914
  5. AZARGA [Suspect]
     Active Substance: BRINZOLAMIDE\TIMOLOL MALEATE
     Dosage: UNK
     Route: 065
     Dates: start: 20200720, end: 20200830

REACTIONS (9)
  - Body temperature increased [Unknown]
  - Dyspnoea [Recovering/Resolving]
  - Blood pressure increased [Recovering/Resolving]
  - Drug intolerance [Recovering/Resolving]
  - Muscular weakness [Recovering/Resolving]
  - Malaise [Recovering/Resolving]
  - Chest pain [Recovering/Resolving]
  - Gait inability [Recovering/Resolving]
  - Condition aggravated [Recovering/Resolving]

NARRATIVE: CASE EVENT DATE: 20200901
